FAERS Safety Report 10150535 (Version 1)
Quarter: 2014Q2

REPORT INFORMATION
  Report Type: Spontaneous
  Country: SE (occurrence: SE)
  Receive Date: 20140502
  Receipt Date: 20140502
  Transmission Date: 20141212
  Serious: Yes (Other)
  Sender: FDA-Public Use
  Company Number: SE-BAXTER-2014BAX021207

PATIENT
  Sex: Female
  Weight: 32 kg

DRUGS (3)
  1. KIOVIG 100 MG/ML INFUSIONSV?TSKA, L?SNING [Suspect]
     Indication: PAEDIATRIC AUTOIMMUNE NEUROPSYCHIATRIC DISORDERS ASSOCIATED WITH STREPTOCOCCAL INFECTION
     Route: 065
     Dates: start: 201311
  2. KIOVIG 100 MG/ML INFUSIONSV?TSKA, L?SNING [Suspect]
     Indication: OFF LABEL USE
     Route: 065
  3. CORTISONE [Concomitant]
     Indication: PRODUCT USED FOR UNKNOWN INDICATION
     Route: 042

REACTIONS (4)
  - Epilepsy [Recovered/Resolved]
  - Mydriasis [Recovered/Resolved]
  - Miosis [Recovered/Resolved]
  - Drug effect decreased [Unknown]
